FAERS Safety Report 9596514 (Version 2)
Quarter: 2013Q4

REPORT INFORMATION
  Report Type: Report from Study
  Country: DE (occurrence: DE)
  Receive Date: 20131004
  Receipt Date: 20131004
  Transmission Date: 20140711
  Serious: Yes (Hospitalization)
  Sender: FDA-Public Use
  Company Number: DE-ABBVIE-13P-062-1040516-00

PATIENT
  Age: 21 Year
  Sex: Female
  Weight: 71 kg

DRUGS (5)
  1. HUMIRA [Suspect]
     Indication: CROHN^S DISEASE
     Route: 058
     Dates: start: 201212, end: 201301
  2. HUMIRA [Suspect]
     Dates: start: 20130826
  3. SALOFALK [Suspect]
     Indication: PRODUCT USED FOR UNKNOWN INDICATION
  4. CERAZETTE [Concomitant]
     Indication: PRODUCT USED FOR UNKNOWN INDICATION
  5. PANTOZOL [Concomitant]
     Indication: PRODUCT USED FOR UNKNOWN INDICATION

REACTIONS (8)
  - Pyrexia [Recovered/Resolved]
  - Abdominal lymphadenopathy [Recovered/Resolved]
  - Abdominal pain [Recovered/Resolved]
  - Drug ineffective [Not Recovered/Not Resolved]
  - Crohn^s disease [Recovered/Resolved]
  - Crohn^s disease [Recovered/Resolved]
  - Drug ineffective [Recovered/Resolved]
  - Intestinal resection [Recovered/Resolved]
